FAERS Safety Report 5967647-2 (Version None)
Quarter: 2008Q4

REPORT INFORMATION
  Report Type: 
  Country: None (occurrence: None)
  Receive Date: 20081126
  Receipt Date: 20081118
  Transmission Date: 20090506
  Serious: Yes (Hospitalization, Disabling)
  Sender: FDA-Public Use
  Company Number: PHHY2008FR26777

PATIENT
  Sex: Female
  Weight: 60 kg

DRUGS (8)
  1. STALEVO 100 [Suspect]
     Indication: PARKINSON'S DISEASE
     Dosage: 50MG/12.5MG/200MG TABLETS, 3 TABLETS/ DAY
     Route: 048
     Dates: start: 20080301
  2. ORENCIA [Interacting]
     Indication: RHEUMATOID ARTHRITIS
     Dosage: 750 MG, QMO
     Dates: start: 20071101
  3. MODOPAR [Concomitant]
     Dosage: 125 MG, BID
     Route: 048
  4. TRIVASTAL [Concomitant]
     Dosage: 6 TABLETS/DAY
     Route: 048
  5. SOTALEX [Concomitant]
     Dosage: UNK
  6. LEVOTHYROX [Concomitant]
     Dosage: UNK
  7. MOTILIUM [Concomitant]
     Dosage: 6 DF/DAY
     Route: 048
  8. NOVATREX [Concomitant]

REACTIONS (3)
  - ABASIA [None]
  - DRUG INTERACTION [None]
  - DYSKINESIA [None]
